FAERS Safety Report 18010149 (Version 1)
Quarter: 2020Q3

REPORT INFORMATION
  Report Type: Spontaneous
  Country: US (occurrence: US)
  Receive Date: 20200710
  Receipt Date: 20200710
  Transmission Date: 20201103
  Serious: Yes (Other)
  Sender: FDA-Public Use
  Company Number: NVSC2020US194262

PATIENT
  Age: 3 Year
  Sex: Male

DRUGS (1)
  1. AZITHROMYCIN ANHYDROUS. [Suspect]
     Active Substance: AZITHROMYCIN ANHYDROUS
     Indication: VENTRICULAR DYSFUNCTION
     Dosage: UNK
     Route: 065

REACTIONS (2)
  - Bradycardia [Unknown]
  - Product use in unapproved indication [Unknown]
